FAERS Safety Report 7368509-9 (Version None)
Quarter: 2011Q1

REPORT INFORMATION
  Report Type: 
  Country: None (occurrence: None)
  Receive Date: 20110317
  Receipt Date: 20110317
  Transmission Date: 20110831
  Serious: Yes (Hospitalization)
  Sender: FDA-Public Use
  Company Number: None

PATIENT
  Age: 45 Year
  Sex: Female
  Weight: 58.9676 kg

DRUGS (2)
  1. CETIRIZINE HCL [Suspect]
     Indication: SEASONAL ALLERGY
     Dosage: 1 TABLET DAILY PO
     Route: 048
     Dates: start: 20110305, end: 20110308
  2. LORATADINE [Suspect]
     Indication: SEASONAL ALLERGY
     Dosage: 1 TABLET DAILY PO
     Route: 048

REACTIONS (6)
  - INSOMNIA [None]
  - CHEST PAIN [None]
  - TREMOR [None]
  - BLOOD PRESSURE INCREASED [None]
  - PALPITATIONS [None]
  - DIZZINESS [None]
